FAERS Safety Report 9518759 (Version 3)
Quarter: 2014Q1

REPORT INFORMATION
  Report Type: Report from Study
  Country: AU (occurrence: AU)
  Receive Date: 20130912
  Receipt Date: 20140124
  Transmission Date: 20141002
  Serious: Yes (Other)
  Sender: FDA-Public Use
  Company Number: PHHY2013AU100665

PATIENT
  Sex: Female

DRUGS (6)
  1. ACLASTA [Suspect]
     Dosage: 5 MG, UNK
     Route: 042
     Dates: start: 20120928
  2. NOVORAPID [Concomitant]
     Dosage: 100 UKN
  3. EZETIMIBE [Concomitant]
     Dosage: UNK
     Route: 048
  4. CRESTOR [Concomitant]
     Dosage: UNK
     Route: 048
  5. AVAPRO [Concomitant]
     Dosage: 1 MG, PER DAY
     Route: 048
  6. NEXIAM [Concomitant]
     Dosage: UNK
     Route: 048

REACTIONS (2)
  - Foot fracture [Unknown]
  - Stress fracture [Unknown]
